FAERS Safety Report 23404927 (Version 4)
Quarter: 2024Q1

REPORT INFORMATION
  Report Type: Spontaneous
  Country: US (occurrence: US)
  Receive Date: 20240116
  Receipt Date: 20240318
  Transmission Date: 20240409
  Serious: No
  Sender: FDA-Public Use
  Company Number: US-PFIZER INC-202300453594

PATIENT
  Age: 4 Year
  Sex: Female
  Weight: 17.234 kg

DRUGS (1)
  1. GENOTROPIN [Suspect]
     Active Substance: SOMATROPIN
     Indication: Prader-Willi syndrome
     Dosage: 0.6 MG, EVERY NIGHT
     Route: 058

REACTIONS (4)
  - Poor quality device used [Unknown]
  - Device leakage [Unknown]
  - Device operational issue [Unknown]
  - Expired device used [Unknown]

NARRATIVE: CASE EVENT DATE: 20231201
